FAERS Safety Report 8227151-8 (Version None)
Quarter: 2012Q1

REPORT INFORMATION
  Report Type: 
  Country: None (occurrence: None)
  Receive Date: 20120322
  Receipt Date: 20120313
  Transmission Date: 20120608
  Serious: Yes (Hospitalization)
  Sender: FDA-Public Use
  Company Number: FR-JNJFOC-20120307828

PATIENT
  Sex: Female

DRUGS (18)
  1. MICONAZOLE [Suspect]
     Indication: ORAL FUNGAL INFECTION
     Route: 002
     Dates: start: 20120104, end: 20120111
  2. COUMADIN [Suspect]
     Route: 048
  3. COUMADIN [Suspect]
     Indication: ATRIAL FIBRILLATION
     Route: 048
     Dates: start: 20110110, end: 20120111
  4. VITAMIN D [Concomitant]
  5. LANSOPRAZOLE [Concomitant]
  6. TRAMADOL HCL [Concomitant]
  7. CITALOPRAM HYDROBROMIDE [Concomitant]
  8. MICONAZOLE [Suspect]
     Route: 002
  9. FER [Concomitant]
  10. MAPROTILINE [Concomitant]
  11. ACIDE FOLIQUE [Concomitant]
  12. ASPIRIN [Suspect]
     Indication: HYPERTENSION
     Route: 048
  13. SPIRONOLACTONE [Concomitant]
  14. FUROSEMIDE [Concomitant]
  15. AMIODARONE HYDROCHLORIDE [Concomitant]
  16. LABETALOL [Concomitant]
  17. MACROGOL 4000 [Concomitant]
  18. ACETAMINOPHEN [Concomitant]

REACTIONS (4)
  - EPISTAXIS [None]
  - HAEMATOMA [None]
  - INTERNATIONAL NORMALISED RATIO INCREASED [None]
  - CONTRAINDICATION TO MEDICAL TREATMENT [None]
